FAERS Safety Report 3948508 (Version 2)
Quarter: 2013Q4

REPORT INFORMATION
  Report Type: Report from Study
  Country: GB (occurrence: GB)
  Receive Date: 20030528
  Receipt Date: 20131112
  Transmission Date: 20140711
  Serious: Yes (Hospitalization)
  Sender: FDA-Public Use
  Company Number: 10623015

PATIENT
  Age: 36 Year
  Sex: Male

DRUGS (3)
  1. BLEOMYCIN HCL [Suspect]
     Indication: GERM CELL CANCER
     Dosage: ADMINISTERED DAY 1,3 AND 15. CYCLE 4 ON 24-NOV-2000
     Route: 042
     Dates: start: 20000901, end: 20001124
  2. CISPLATIN [Suspect]
     Indication: GERM CELL CANCER
     Dosage: ADINISTERED ON DAYS 1-5
     Route: 042
     Dates: start: 20000901
  3. ETOPOSIDE [Suspect]
     Indication: GERM CELL CANCER
     Dosage: ADINISTERED ON DAYS 1-5
     Route: 042
     Dates: start: 20000901

REACTIONS (1)
  - Diarrhoea [Recovered/Resolved]
